FAERS Safety Report 17771826 (Version 2)
Quarter: 2020Q2

REPORT INFORMATION
  Report Type: Spontaneous
  Country: US (occurrence: US)
  Receive Date: 20200512
  Receipt Date: 20200625
  Transmission Date: 20200714
  Serious: Yes (Hospitalization)
  Sender: FDA-Public Use
  Company Number: US-FARMAPROD-202004-0584

PATIENT
  Age: 61 Year
  Sex: Male
  Weight: 70.7 kg

DRUGS (4)
  1. OXERVATE [Suspect]
     Active Substance: CENEGERMIN-BKBJ
     Indication: CORNEAL OEDEMA
     Route: 047
     Dates: start: 20200316
  2. PREDNISONE. [Suspect]
     Active Substance: PREDNISONE
     Indication: EYE ULCER
     Route: 048
     Dates: end: 202004
  3. POLYSPORIN [Concomitant]
     Active Substance: BACITRACIN ZINC\POLYMYXIN B SULFATE
     Indication: EYE ULCER
  4. VALACYCLOVIR [Concomitant]
     Active Substance: VALACYCLOVIR HYDROCHLORIDE
     Indication: EYE ULCER
     Route: 048

REACTIONS (3)
  - Malaise [Unknown]
  - Fatigue [Unknown]
  - Gastrointestinal haemorrhage [Recovered/Resolved]

NARRATIVE: CASE EVENT DATE: 20200422
